FAERS Safety Report 6165018-X (Version None)
Quarter: 2009Q2

REPORT INFORMATION
  Report Type: 
  Country: None (occurrence: None)
  Receive Date: 20090423
  Receipt Date: 20090410
  Transmission Date: 20091009
  Serious: Yes (Other)
  Sender: FDA-Public Use
  Company Number: US-ELI_LILLY_AND_COMPANY-US200904003349

PATIENT
  Age: 54 Year
  Sex: Female

DRUGS (2)
  1. STRATTERA [Suspect]
     Dosage: 25 MG, 2/D
     Route: 065
     Dates: start: 20080426, end: 20080926
  2. LEXAPRO [Concomitant]
     Indication: MAJOR DEPRESSION
     Dosage: 30 MG, DAILY (1/D)
     Route: 065

REACTIONS (3)
  - CARDIAC DISORDER [None]
  - CHEST DISCOMFORT [None]
  - HEART RATE ABNORMAL [None]
